FAERS Safety Report 22002115 (Version 2)
Quarter: 2025Q3

REPORT INFORMATION
  Report Type: Spontaneous
  Country: US (occurrence: US)
  Receive Date: 20230216
  Receipt Date: 20250709
  Transmission Date: 20251020
  Serious: Yes (Other)
  Sender: AUROBINDO
  Company Number: US-AUROBINDO-AUR-APL-2023-007032

PATIENT
  Age: 9 Month
  Sex: Female

DRUGS (1)
  1. VIGABATRIN [Suspect]
     Active Substance: VIGABATRIN
     Indication: Product used for unknown indication
     Route: 065

REACTIONS (3)
  - Retinal degeneration [Unknown]
  - Aicardi^s syndrome [Unknown]
  - Retinal toxicity [Unknown]
